FAERS Safety Report 6211580-8 (Version None)
Quarter: 2009Q2

REPORT INFORMATION
  Report Type: 
  Country: None (occurrence: None)
  Receive Date: 20090528
  Receipt Date: 20090519
  Transmission Date: 20091009
  Serious: Yes (Hospitalization)
  Sender: FDA-Public Use
  Company Number: 2009JP002954

PATIENT
  Age: 26 Year
  Sex: Female

DRUGS (1)
  1. PROGRAF [Suspect]
     Indication: RENAL TRANSPLANT

REACTIONS (3)
  - KERATITIS [None]
  - PHARYNGITIS [None]
  - UPPER RESPIRATORY TRACT INFLAMMATION [None]
